FAERS Safety Report 8701775 (Version 3)
Quarter: 2012Q4

REPORT INFORMATION
  Report Type: 
  Country: JP (occurrence: JP)
  Receive Date: 20120803
  Receipt Date: 20121002
  Transmission Date: 20130627
  Serious: Yes (Other)
  Sender: FDA-Public Use
  Company Number: PHHY2012JP066181

PATIENT
  Age: 62 Year
  Sex: Male

DRUGS (1)
  1. ZOMETA [Suspect]
     Indication: METASTASES TO BONE
     Dosage: 4 mg, every 3 months
     Route: 041
     Dates: start: 20070228

REACTIONS (11)
  - Osteonecrosis of jaw [Not Recovered/Not Resolved]
  - Impaired healing [Unknown]
  - Exposed bone in jaw [Unknown]
  - Swelling [Unknown]
  - Erythema [Unknown]
  - Gingival infection [Unknown]
  - Tenderness [Unknown]
  - Lymph node pain [Unknown]
  - Bone lesion [Unknown]
  - Soft tissue infection [Unknown]
  - Abscess [Unknown]
